FAERS Safety Report 20415823 (Version 3)
Quarter: 2022Q1

REPORT INFORMATION
  Report Type: Spontaneous
  Country: US (occurrence: US)
  Receive Date: 20220202
  Receipt Date: 20220215
  Transmission Date: 20220424
  Serious: Yes (Hospitalization, Other)
  Sender: FDA-Public Use
  Company Number: US-UNITED THERAPEUTICS-UNT-2022-002291

PATIENT
  Age: 28 Year
  Sex: Female

DRUGS (3)
  1. REMODULIN [Suspect]
     Active Substance: TREPROSTINIL
     Indication: Pulmonary arterial hypertension
     Dosage: UNK, CONTINUING
     Route: 058
     Dates: start: 20201003
  2. REMODULIN [Suspect]
     Active Substance: TREPROSTINIL
     Dosage: 0.1139 ?G/KG, CONTINUING
     Route: 058
  3. REMODULIN [Suspect]
     Active Substance: TREPROSTINIL
     Dosage: 0.1175 ?G/KG, CONTINUING
     Route: 058

REACTIONS (3)
  - Chest pain [Unknown]
  - Pericardial effusion [Unknown]
  - Device data issue [Recovered/Resolved]

NARRATIVE: CASE EVENT DATE: 20220127
